FAERS Safety Report 15366954 (Version 10)
Quarter: 2019Q2

REPORT INFORMATION
  Report Type: Report from Study
  Country: BR (occurrence: BR)
  Receive Date: 20180910
  Receipt Date: 20190514
  Transmission Date: 20190711
  Serious: Yes (Life-Threatening, Other)
  Sender: FDA-Public Use
  Company Number: PHHY2015BR178197

PATIENT
  Age: 75 Year
  Sex: Female
  Weight: 76 kg

DRUGS (12)
  1. SANDOSTATIN LAR DEPOT [Suspect]
     Active Substance: OCTREOTIDE ACETATE
     Dosage: 30 MG, QMO
     Route: 030
     Dates: start: 20180612
  2. SANDOSTATIN LAR DEPOT [Suspect]
     Active Substance: OCTREOTIDE ACETATE
     Dosage: 30 MG, UNK (EVERY 21 DAYS)
     Route: 030
  3. EVISTA [Concomitant]
     Active Substance: RALOXIFENE HYDROCHLORIDE
     Indication: PRODUCT USED FOR UNKNOWN INDICATION
     Dosage: 60 MG, UNK
     Route: 065
  4. SANDOSTATIN LAR DEPOT [Suspect]
     Active Substance: OCTREOTIDE ACETATE
     Indication: ACROMEGALY
     Dosage: 1 DF, QMO, EVERY 28 DAYS
     Route: 030
     Dates: start: 2013
  5. SANDOSTATIN LAR DEPOT [Suspect]
     Active Substance: OCTREOTIDE ACETATE
     Indication: BONE ATROPHY
     Dosage: 30 MG, QMO (EVERY 28 DAYS)
     Route: 030
  6. SANDOSTATIN LAR DEPOT [Suspect]
     Active Substance: OCTREOTIDE ACETATE
     Indication: HYPOTHALAMO-PITUITARY DISORDER
     Dosage: 30 MG, EVERY 21 DAYS
     Route: 030
     Dates: start: 2017
  7. SANDOSTATIN LAR DEPOT [Suspect]
     Active Substance: OCTREOTIDE ACETATE
     Dosage: UNK
     Route: 065
     Dates: start: 20190509
  8. DORMEX [Concomitant]
     Indication: PRODUCT USED FOR UNKNOWN INDICATION
     Dosage: 100 MG, UNK
     Route: 065
  9. ALEVO [Concomitant]
     Indication: SINUSITIS
     Dosage: 1 DF, QD
     Route: 048
  10. CABERGOLINE. [Concomitant]
     Active Substance: CABERGOLINE
     Indication: PRODUCT USED FOR UNKNOWN INDICATION
     Dosage: 0.5 MG, UNK
     Route: 065
  11. ALEVO [Concomitant]
     Indication: CATARRH
  12. TIMOLOL. [Concomitant]
     Active Substance: TIMOLOL
     Indication: GLAUCOMA
     Dosage: 1 DF, BID
     Route: 031

REACTIONS (89)
  - Weight increased [Recovered/Resolved]
  - Gait inability [Unknown]
  - Neoplasm progression [Unknown]
  - Memory impairment [Recovering/Resolving]
  - Burning sensation [Not Recovered/Not Resolved]
  - Pyrexia [Unknown]
  - Swelling face [Recovered/Resolved]
  - Cough [Unknown]
  - Weight increased [Unknown]
  - Somnolence [Not Recovered/Not Resolved]
  - Gait disturbance [Recovered/Resolved]
  - Oedema [Unknown]
  - Syncope [Recovered/Resolved]
  - Dysphonia [Unknown]
  - Eye disorder [Not Recovered/Not Resolved]
  - Pain in extremity [Recovering/Resolving]
  - Bone pain [Recovered/Resolved]
  - Gait disturbance [Recovered/Resolved]
  - Erythema [Unknown]
  - Overweight [Unknown]
  - Eating disorder [Unknown]
  - Tremor [Recovered/Resolved]
  - Bronchitis [Not Recovered/Not Resolved]
  - Bone formation increased [Recovered/Resolved]
  - Product use in unapproved indication [Unknown]
  - Suicidal ideation [Unknown]
  - Syncope [Unknown]
  - Condition aggravated [Recovering/Resolving]
  - Arthropathy [Unknown]
  - Limb discomfort [Unknown]
  - Arthralgia [Unknown]
  - Anxiety [Unknown]
  - Pain [Unknown]
  - Abdominal distension [Unknown]
  - Sinusitis [Unknown]
  - Inappropriate schedule of product administration [Not Recovered/Not Resolved]
  - Anaemia [Recovered/Resolved]
  - Catarrh [Recovering/Resolving]
  - Ear discomfort [Not Recovered/Not Resolved]
  - Fatigue [Recovered/Resolved]
  - Joint swelling [Recovering/Resolving]
  - Loose body in joint [Recovered/Resolved]
  - Varicophlebitis [Unknown]
  - Feeding disorder [Unknown]
  - Tongue dry [Not Recovered/Not Resolved]
  - Asthenia [Recovered/Resolved]
  - Hyperhidrosis [Not Recovered/Not Resolved]
  - Head discomfort [Not Recovered/Not Resolved]
  - Rhinorrhoea [Not Recovered/Not Resolved]
  - Nasal congestion [Not Recovered/Not Resolved]
  - Gait disturbance [Recovered/Resolved]
  - Gastrointestinal pain [Unknown]
  - Fear [Unknown]
  - Feeling of despair [Unknown]
  - Decreased activity [Unknown]
  - Nasopharyngitis [Recovering/Resolving]
  - Bone disorder [Recovered/Resolved]
  - Weight decreased [Recovered/Resolved]
  - Dyspnoea [Recovered/Resolved]
  - Injection site pain [Recovered/Resolved]
  - Injection site induration [Recovered/Resolved]
  - Sinusitis [Recovered/Resolved]
  - Aphasia [Recovering/Resolving]
  - Asthenia [Not Recovered/Not Resolved]
  - Feeling hot [Recovering/Resolving]
  - Feeling abnormal [Unknown]
  - Swelling [Not Recovered/Not Resolved]
  - Wheezing [Not Recovered/Not Resolved]
  - Depressed mood [Not Recovered/Not Resolved]
  - Swelling [Recovered/Resolved]
  - Malaise [Recovered/Resolved]
  - Ear pain [Unknown]
  - Loose body in joint [Recovered/Resolved]
  - Dyspnoea [Recovering/Resolving]
  - Headache [Recovering/Resolving]
  - Deformity [Recovered/Resolved]
  - Weight decreased [Not Recovered/Not Resolved]
  - Hyperhidrosis [Recovered/Resolved]
  - Disease complication [Unknown]
  - Swelling [Recovering/Resolving]
  - Injection site swelling [Recovered/Resolved]
  - Pituitary tumour [Unknown]
  - Fatigue [Not Recovered/Not Resolved]
  - Body height decreased [Not Recovered/Not Resolved]
  - Peripheral swelling [Recovered/Resolved]
  - Skin discolouration [Unknown]
  - Hypoacusis [Unknown]
  - Productive cough [Not Recovered/Not Resolved]
  - Asthma [Unknown]

NARRATIVE: CASE EVENT DATE: 201606
